FAERS Safety Report 5884795-6 (Version None)
Quarter: 2008Q3

REPORT INFORMATION
  Report Type: 
  Country: None (occurrence: None)
  Receive Date: 20080915
  Receipt Date: 20080915
  Transmission Date: 20090109
  Serious: Yes (Hospitalization)
  Sender: FDA-Public Use
  Company Number: None

PATIENT
  Age: 27 Year
  Sex: Female
  Weight: 72.5755 kg

DRUGS (1)
  1. YAZ [Suspect]
     Indication: PREMENSTRUAL SYNDROME
     Dosage: 1 PILL A DAY
     Dates: start: 20070501, end: 20070621

REACTIONS (2)
  - CEREBROVASCULAR ACCIDENT [None]
  - IMPAIRED WORK ABILITY [None]
